FAERS Safety Report 9105185 (Version 2)
Quarter: 2013Q3

REPORT INFORMATION
  Report Type: Spontaneous
  Country: US (occurrence: US)
  Receive Date: 20130220
  Receipt Date: 20130801
  Transmission Date: 20140515
  Serious: Yes (Hospitalization, Other)
  Sender: FDA-Public Use
  Company Number: US-BAYER-2013-018436

PATIENT
  Age: 68 Year
  Sex: Male

DRUGS (14)
  1. BAYER ASPIRIN REGIMEN ADULT LOW STRENGTH [Suspect]
     Dosage: 81 MG, DAILY
     Route: 048
  2. ABIRATERONE [Suspect]
     Indication: PROSTATE CANCER METASTATIC
     Dosage: 1000 MG, QD
     Route: 048
     Dates: start: 20110306
  3. BENICAR [Suspect]
     Dosage: 20 MG, DAILY
     Route: 048
  4. LIPITOR [Suspect]
     Dosage: 40 MG, HS
     Route: 048
  5. BYSTOLIC [Suspect]
     Dosage: 20 MG, DAILY
     Route: 048
  6. GLYBURIDE [Suspect]
     Dosage: 10 MG, BID
     Route: 048
  7. IMDUR [Suspect]
     Dosage: 30 MG, DAILY
     Route: 048
  8. METHADONE HCL [Suspect]
     Dosage: 5 MG, TID, EVERY 8 HRS
     Route: 048
     Dates: start: 20110307
  9. NITROGLYCERIN [Suspect]
     Indication: CHEST PAIN
     Dosage: 0.4 MG, PRN
     Route: 060
  10. PREDNISONE [Suspect]
     Indication: PROSTATE CANCER METASTATIC
     Dosage: 0.5 MG, DAILY
     Route: 048
  11. NUCYNTA [Suspect]
     Dosage: 0.75 MG, Q4HR
     Route: 048
  12. SUNITINIB [Suspect]
     Dosage: 37.5 MG, QD
     Route: 048
     Dates: start: 20120227, end: 20120422
  13. SENOKOT-S [Concomitant]
     Dosage: UNK UNK, BID
     Route: 048
  14. DASATINIB [Concomitant]

REACTIONS (5)
  - Dyspnoea [Recovered/Resolved]
  - Chest pain [None]
  - Mental status changes [Recovered/Resolved]
  - Muscular weakness [Recovered/Resolved]
  - Metastases to bone [None]
